FAERS Safety Report 24300601 (Version 1)
Quarter: 2024Q3

REPORT INFORMATION
  Report Type: Spontaneous
  Country: FR (occurrence: FR)
  Receive Date: 20240910
  Receipt Date: 20240910
  Transmission Date: 20241017
  Serious: Yes (Hospitalization)
  Sender: ACCORD
  Company Number: None

PATIENT
  Age: 1 Day
  Sex: Male
  Weight: 2.26 kg

DRUGS (5)
  1. QUETIAPINE [Suspect]
     Active Substance: QUETIAPINE
     Indication: Mental disorder
     Dates: start: 20240114, end: 20240317
  2. COCAINE [Suspect]
     Active Substance: COCAINE
     Indication: Dependence
     Dosage: NOT SPECIFIED
     Dates: end: 20231228
  3. ALCOHOL [Suspect]
     Active Substance: ALCOHOL
     Indication: Dependence
     Dosage: NOT SPECIFIED
     Dates: end: 20231228
  4. OXAZEPAM [Suspect]
     Active Substance: OXAZEPAM
     Indication: Mental disorder
     Dates: end: 20240317
  5. PAROXETINE HYDROCHLORIDE [Suspect]
     Active Substance: PAROXETINE HYDROCHLORIDE\PAROXETINE HYDROCHLORIDE ANHYDROUS
     Indication: Mental disorder
     Dates: end: 20240317

REACTIONS (2)
  - Foetal exposure during pregnancy [Recovered/Resolved]
  - Premature baby [Recovered/Resolved]

NARRATIVE: CASE EVENT DATE: 20240317
